FAERS Safety Report 21341680 (Version 1)
Quarter: 2022Q3

REPORT INFORMATION
  Report Type: Spontaneous
  Country: US (occurrence: None)
  Receive Date: 20220915
  Receipt Date: 20220915
  Transmission Date: 20221026
  Serious: No
  Sender: FDA-Public Use
  Company Number: None

PATIENT
  Age: 44 Year
  Sex: Female
  Weight: 95.25 kg

DRUGS (17)
  1. CAPECITABINE [Suspect]
     Active Substance: CAPECITABINE
     Indication: Rectosigmoid cancer
     Dosage: FREQUENCY : TWICE A DAY;?
     Route: 048
     Dates: start: 202206, end: 20220915
  2. ALBUTEROL [Concomitant]
     Active Substance: ALBUTEROL
  3. AVASTIN [Concomitant]
     Active Substance: BEVACIZUMAB
  4. VITAMINS [Concomitant]
     Active Substance: VITAMINS
  5. DIPHENHYDRAMINE [Concomitant]
     Active Substance: DIPHENHYDRAMINE
  6. FAMOTIDINE [Concomitant]
     Active Substance: FAMOTIDINE
  7. IBUPROFEN [Concomitant]
     Active Substance: IBUPROFEN
  8. FERROUS SULFATE ANHYDROUS [Concomitant]
     Active Substance: FERROUS SULFATE ANHYDROUS
  9. KLONOPIN [Concomitant]
     Active Substance: CLONAZEPAM
  10. LORAZEPAM [Concomitant]
     Active Substance: LORAZEPAM
  11. LEXAPRO [Concomitant]
     Active Substance: ESCITALOPRAM OXALATE
  12. LOPERAMIDE [Concomitant]
     Active Substance: LOPERAMIDE
  13. METAMUCIL [Concomitant]
     Active Substance: PLANTAGO SEED
  14. OXYCODONE [Concomitant]
     Active Substance: OXYCODONE
  15. REXULTI [Concomitant]
     Active Substance: BREXPIPRAZOLE
  16. VITAMIN B12 [Concomitant]
     Active Substance: CYANOCOBALAMIN
  17. XTAMPZA ER [Concomitant]
     Active Substance: OXYCODONE

REACTIONS (1)
  - Palmar-plantar erythrodysaesthesia syndrome [None]

NARRATIVE: CASE EVENT DATE: 20220915
